FAERS Safety Report 7497485-3 (Version None)
Quarter: 2011Q2

REPORT INFORMATION
  Report Type: 
  Country: None (occurrence: None)
  Receive Date: 20110523
  Receipt Date: 20110512
  Transmission Date: 20111010
  Serious: Yes (Hospitalization, Other)
  Sender: FDA-Public Use
  Company Number: DE-ELI_LILLY_AND_COMPANY-DE201105003601

PATIENT
  Sex: Male

DRUGS (6)
  1. CALCIUM WITH VITAMIN D [Concomitant]
     Dosage: UNK, UNKNOWN
     Route: 065
  2. NICOTINE [Concomitant]
     Dosage: UNK
     Route: 065
  3. FORTEO [Suspect]
     Indication: OSTEOPOROSIS
     Dosage: UNK, QD
     Route: 058
     Dates: start: 20100517
  4. OPIPRAMOL [Concomitant]
     Dosage: UNK
     Route: 065
     Dates: start: 20101001
  5. TILIDIN [Concomitant]
     Dosage: UNK
     Route: 065
  6. MARCUMAR [Concomitant]
     Dosage: UNK
     Route: 065
     Dates: start: 20101101

REACTIONS (4)
  - EPILEPSY [None]
  - THROMBOSIS [None]
  - CROHN'S DISEASE [None]
  - FRACTURE [None]
